FAERS Safety Report 15799928 (Version 2)
Quarter: 2019Q1

REPORT INFORMATION
  Report Type: Spontaneous
  Country: US (occurrence: US)
  Receive Date: 20190108
  Receipt Date: 20190212
  Transmission Date: 20190417
  Serious: Yes (Other)
  Sender: FDA-Public Use
  Company Number: US-ELI_LILLY_AND_COMPANY-US201901000192

PATIENT
  Sex: Female

DRUGS (2)
  1. CYMBALTA [Suspect]
     Active Substance: DULOXETINE HYDROCHLORIDE
     Indication: FIBROMYALGIA
     Dosage: 60 MG, DAILY
     Route: 065
  2. CYMBALTA [Suspect]
     Active Substance: DULOXETINE HYDROCHLORIDE
     Indication: NEUROPATHY PERIPHERAL

REACTIONS (12)
  - Nausea [Unknown]
  - Osteomyelitis [Unknown]
  - Middle insomnia [Unknown]
  - Weight decreased [Unknown]
  - Dysphagia [Unknown]
  - Headache [Unknown]
  - Choking [Unknown]
  - Feeding disorder [Unknown]
  - Nocturnal fear [Unknown]
  - Tremor [Unknown]
  - Withdrawal syndrome [Unknown]
  - Anxiety [Unknown]
